FAERS Safety Report 6696852-5 (Version None)
Quarter: 2010Q2

REPORT INFORMATION
  Report Type: 
  Country: None (occurrence: None)
  Receive Date: 20100420
  Receipt Date: 20090224
  Transmission Date: 20101027
  Serious: Yes (Other)
  Sender: FDA-Public Use
  Company Number: SPV1-2009-00299

PATIENT
  Age: 33 Year
  Sex: Female
  Weight: 56.7 kg

DRUGS (5)
  1. LIALDA [Suspect]
     Indication: COLITIS ULCERATIVE
     Dosage: 2.4 G DAILY, ORAL
     Route: 048
     Dates: start: 20070101, end: 20090220
  2. REMICADE [Concomitant]
  3. XANAX [Concomitant]
  4. AMBIEN [Concomitant]
  5. ZOLOFT [Concomitant]

REACTIONS (4)
  - ALOPECIA [None]
  - CONFUSIONAL STATE [None]
  - DIZZINESS [None]
  - RECTAL HAEMORRHAGE [None]
